FAERS Safety Report 6810263-0 (Version None)
Quarter: 2010Q2

REPORT INFORMATION
  Report Type: 
  Country: None (occurrence: None)
  Receive Date: 20100630
  Receipt Date: 20100625
  Transmission Date: 20101027
  Serious: Yes (Hospitalization)
  Sender: FDA-Public Use
  Company Number: BE-BRISTOL-MYERS SQUIBB COMPANY-14690762

PATIENT
  Age: 55 Year
  Sex: Male
  Weight: 102 kg

DRUGS (8)
  1. CISPLATIN [Suspect]
     Indication: NON-SMALL CELL LUNG CANCER
     Dosage: 24MAR09-25MAY09,16JUN09-18JUN09
     Route: 042
     Dates: start: 20090324, end: 20090525
  2. ALIMTA [Suspect]
     Indication: NON-SMALL CELL LUNG CANCER
     Dosage: TAKING 500MG/M2 DAY1 EVERY 21 DAYS IV FROM UNK DATE, 24MAR09-25MAY09,16JUN09-18JUN09.
     Route: 042
     Dates: start: 20090324, end: 20090525
  3. ALIMTA [Suspect]
     Indication: NON-SMALL CELL LUNG CANCER
     Dates: start: 20090616, end: 20090616
  4. FOLIC ACID [Concomitant]
     Dates: start: 20090319
  5. VITAMIN B-12 [Concomitant]
     Dates: start: 20090525
  6. MEDROL [Concomitant]
  7. DURAGESIC-100 [Concomitant]
     Indication: PAIN
  8. NEXIUM [Concomitant]
     Indication: DYSPEPSIA

REACTIONS (5)
  - BLOOD ALKALINE PHOSPHATASE INCREASED [None]
  - HEPATOMEGALY [None]
  - MALIGNANT NEOPLASM PROGRESSION [None]
  - NON-SMALL CELL LUNG CANCER [None]
  - OEDEMA PERIPHERAL [None]
